FAERS Safety Report 5702317-7 (Version None)
Quarter: 2008Q2

REPORT INFORMATION
  Report Type: 
  Country: None (occurrence: None)
  Receive Date: 20080411
  Receipt Date: 20080403
  Transmission Date: 20081010
  Serious: Yes (Hospitalization)
  Sender: FDA-Public Use
  Company Number: FR-AVENTIS-200811235FR

PATIENT
  Age: 91 Year
  Sex: Female

DRUGS (7)
  1. LASILIX                            /00032601/ [Suspect]
     Route: 048
     Dates: end: 20071214
  2. LOSARTAN POTASSIUM AND HYDROCHLOROTHIAZIDE [Suspect]
     Route: 048
     Dates: end: 20071214
  3. GLIMEPIRIDE [Concomitant]
     Route: 048
     Dates: end: 20071214
  4. FLECAINIDE ACETATE [Concomitant]
     Route: 048
  5. MONICOR [Concomitant]
     Indication: PROPHYLAXIS
     Route: 048
  6. CALCIDOSE                          /00108001/ [Concomitant]
     Indication: CALCIUM DEFICIENCY
     Route: 048
  7. MOTILIUM [Concomitant]
     Indication: NAUSEA
     Route: 048

REACTIONS (2)
  - DRUG INTERACTION [None]
  - RENAL FAILURE ACUTE [None]
